FAERS Safety Report 5877247-0 (Version None)
Quarter: 2008Q3

REPORT INFORMATION
  Report Type: 
  Country: None (occurrence: None)
  Receive Date: 20080910
  Receipt Date: 20080829
  Transmission Date: 20090109
  Serious: Yes (Other)
  Sender: FDA-Public Use
  Company Number: US-PFIZER INC-2008074432

PATIENT
  Sex: Female
  Weight: 63.5 kg

DRUGS (8)
  1. CHANTIX [Suspect]
     Indication: SMOKING CESSATION THERAPY
  2. PROTONIX [Concomitant]
  3. ALLEGRA [Concomitant]
  4. MONTELUKAST SODIUM [Concomitant]
  5. FISH OIL [Concomitant]
  6. ALL OTHER THERAPEUTIC PRODUCTS [Concomitant]
  7. CALCIUM [Concomitant]
  8. HERBAL NOS/MINERALS NOS [Concomitant]

REACTIONS (1)
  - HOMICIDAL IDEATION [None]
